FAERS Safety Report 23952348 (Version 1)
Quarter: 2024Q2

REPORT INFORMATION
  Report Type: Report from Study
  Country: US (occurrence: US)
  Receive Date: 20240607
  Receipt Date: 20240607
  Transmission Date: 20240716
  Serious: No
  Sender: FDA-Public Use
  Company Number: US-INCYTE CORPORATION-2024IN004888

PATIENT

DRUGS (1)
  1. JAKAFI [Suspect]
     Active Substance: RUXOLITINIB
     Indication: Chronic graft versus host disease
     Dosage: 10 MILLIGRAM, 2 TABLETS IN AM AND 1 TABLET IN PM
     Route: 048
     Dates: start: 20160101, end: 20240508

REACTIONS (2)
  - Product availability issue [Unknown]
  - Anxiety [Unknown]

NARRATIVE: CASE EVENT DATE: 20240508
